FAERS Safety Report 10990897 (Version 3)
Quarter: 2015Q2

REPORT INFORMATION
  Report Type: Report from Study
  Country: US (occurrence: US)
  Receive Date: 20150406
  Receipt Date: 20150420
  Transmission Date: 20150821
  Serious: Yes (Death, Hospitalization)
  Sender: FDA-Public Use
  Company Number: US-ACTELION-A-NJ2015-112435

PATIENT
  Age: 78 Year
  Sex: Female

DRUGS (5)
  1. VENTAVIS [Suspect]
     Active Substance: ILOPROST
     Indication: PULMONARY ARTERIAL HYPERTENSION
     Dosage: 2.5 MCG, 6X/DAY
     Route: 055
     Dates: start: 20150130
  2. VENTAVIS [Suspect]
     Active Substance: ILOPROST
     Dosage: 5 MCG, 6X/DAY
     Route: 055
     Dates: end: 20150320
  3. VENTAVIS [Suspect]
     Active Substance: ILOPROST
     Dosage: 5 MCG, 4X/DAY
     Route: 055
  4. LETAIRIS [Concomitant]
     Active Substance: AMBRISENTAN
  5. ADCIRCA [Concomitant]
     Active Substance: TADALAFIL

REACTIONS (26)
  - Cardio-respiratory arrest [Fatal]
  - Pulseless electrical activity [Fatal]
  - Liver disorder [Unknown]
  - Respiratory acidosis [Fatal]
  - Loss of consciousness [Fatal]
  - Migraine [Recovered/Resolved]
  - Pain in extremity [Unknown]
  - Fluid retention [Unknown]
  - Dyspnoea [Unknown]
  - Fatigue [Unknown]
  - Fall [Unknown]
  - Blood bilirubin increased [Unknown]
  - Haemoptysis [Fatal]
  - Blood alkaline phosphatase increased [Unknown]
  - Weight increased [Unknown]
  - Renal failure [Unknown]
  - Abdominal pain [Unknown]
  - Bundle branch block right [Unknown]
  - Alanine aminotransferase increased [Unknown]
  - Localised oedema [Unknown]
  - Oedema peripheral [Unknown]
  - Hyperkalaemia [Unknown]
  - International normalised ratio increased [Fatal]
  - Aspartate aminotransferase increased [Unknown]
  - Headache [Unknown]
  - Hyperglycaemia [Unknown]

NARRATIVE: CASE EVENT DATE: 20150402
